FAERS Safety Report 6174866-1 (Version None)
Quarter: 2009Q2

REPORT INFORMATION
  Report Type: 
  Country: None (occurrence: None)
  Receive Date: 20090430
  Receipt Date: 20081205
  Transmission Date: 20091009
  Serious: No
  Sender: FDA-Public Use
  Company Number: US-ASTRAZENECA-2008UW27117

PATIENT
  Sex: Male

DRUGS (3)
  1. NEXIUM [Suspect]
     Dosage: ONCE DAILY
     Route: 048
     Dates: start: 20081203
  2. DIGOXIN [Concomitant]
  3. BREATHING TREATMENT [Concomitant]
     Indication: RESPIRATORY DISORDER

REACTIONS (2)
  - HEART RATE INCREASED [None]
  - HEART RATE IRREGULAR [None]
